FAERS Safety Report 4778844-6 (Version None)
Quarter: 2005Q3

REPORT INFORMATION
  Report Type: 
  Country: None (occurrence: None)
  Receive Date: 20050922
  Receipt Date: 20050906
  Transmission Date: 20060218
  Serious: No
  Sender: FDA-Public Use
  Company Number: 12144

PATIENT
  Age: 33 Year
  Sex: Female
  Weight: 65.7716 kg

DRUGS (1)
  1. METHOTREXATE [Suspect]

REACTIONS (3)
  - ACCIDENTAL EXPOSURE [None]
  - SCAR [None]
  - SKIN REACTION [None]
